FAERS Safety Report 9845372 (Version 1)
Quarter: 2013Q4

REPORT INFORMATION
  Report Type: Spontaneous
  Country: US (occurrence: None)
  Receive Date: 20131219
  Receipt Date: 20131219
  Transmission Date: 20140711
  Serious: Yes (Hospitalization)
  Sender: FDA-Public Use
  Company Number: 163-20785-13101112

PATIENT
  Sex: Male

DRUGS (4)
  1. THALIDOMIDE (THALIDOMIDE) (CAPSULES) [Suspect]
     Indication: PLASMA CELL MYELOMA
     Dosage: 100 MG, 28 IN 28 D, PO
     Route: 048
  2. OXYCODONE HCL (OXYCODONE HYDROCHLORIDE) [Concomitant]
  3. MORPHINE SULFATE (MORPHINE SULFATE) INJECTION [Concomitant]
  4. BENADRYL (CLONALIN) [Concomitant]

REACTIONS (1)
  - Gastrointestinal haemorrhage [None]
